FAERS Safety Report 4793399-8 (Version None)
Quarter: 2005Q4

REPORT INFORMATION
  Report Type: 
  Country: None (occurrence: None)
  Receive Date: 20051005
  Receipt Date: 20050923
  Transmission Date: 20060501
  Serious: Yes (Hospitalization, Other)
  Sender: FDA-Public Use
  Company Number: 2005133439

PATIENT
  Age: 77 Year
  Sex: Female
  Weight: 50.8029 kg

DRUGS (5)
  1. XALATAN [Suspect]
     Indication: INTRAOCULAR PRESSURE INCREASED
     Dosage: 1 DROP (QHS) OPHTHALMIC
     Route: 047
     Dates: start: 20050901
  2. ASPIRIN [Concomitant]
  3. ATENOLOL [Concomitant]
  4. TRIAMTERENE AND HYDROCHLOROTHIAZIDE [Concomitant]
  5. VITAMINS [Concomitant]

REACTIONS (3)
  - HEART RATE IRREGULAR [None]
  - TRANSIENT ISCHAEMIC ATTACK [None]
  - WRONG TECHNIQUE IN DRUG USAGE PROCESS [None]
